FAERS Safety Report 7040051-4 (Version None)
Quarter: 2010Q4

REPORT INFORMATION
  Report Type: 
  Country: None (occurrence: None)
  Receive Date: 20101012
  Receipt Date: 20100927
  Transmission Date: 20110411
  Serious: Yes (Other)
  Sender: FDA-Public Use
  Company Number: PHHY2010BR67653

PATIENT
  Age: 84 Year
  Sex: Female
  Weight: 92.5 kg

DRUGS (5)
  1. DIOVAN AMLO FIX [Suspect]
     Dosage: 160/5  MG TWICE DAILY
  2. SIMVASTATIN [Concomitant]
     Dosage: 20 MG AT NIGHT
  3. ACETAZOLAMIDE [Concomitant]
     Dosage: 250 MG HALF TABLET TWICE DAILY
  4. SPIRONOLACTONE [Concomitant]
     Dosage: 1 TABLET/DAY
  5. ACETYLSALICYLIC ACID SRT [Concomitant]
     Dosage: 100 MG /DAY

REACTIONS (4)
  - AORTIC DILATATION [None]
  - EXOSTOSIS [None]
  - FATIGUE [None]
  - HYPERTENSION [None]
